FAERS Safety Report 9669566 (Version 2)
Quarter: 2013Q4

REPORT INFORMATION
  Report Type: Spontaneous
  Country: US (occurrence: US)
  Receive Date: 20131105
  Receipt Date: 20131105
  Transmission Date: 20140711
  Serious: Yes (Hospitalization, Other)
  Sender: FDA-Public Use
  Company Number: US-GILEAD-2013-0080624

PATIENT
  Age: 56 Year
  Sex: Male

DRUGS (2)
  1. LETAIRIS [Suspect]
     Indication: PULMONARY HYPERTENSION
     Dosage: 10 MG, UNK
     Dates: start: 20130117
  2. LETAIRIS [Suspect]
     Indication: SCLERODERMA

REACTIONS (2)
  - Respiratory failure [Unknown]
  - Pneumonia aspiration [Unknown]
